FAERS Safety Report 8760272 (Version 2)
Quarter: 2012Q4

REPORT INFORMATION
  Report Type: Spontaneous
  Country: US (occurrence: None)
  Receive Date: 20120820
  Receipt Date: 20121116
  Transmission Date: 20130627
  Serious: Yes (Death)
  Sender: FDA-Public Use
  Company Number: 2012-407

PATIENT
  Age: 54 Year
  Sex: Female

DRUGS (1)
  1. FAZACLO [Suspect]
     Indication: SCHIZOPHRENIA
     Route: 048
     Dates: start: 20111215, end: 20120720

REACTIONS (1)
  - Death [None]
